FAERS Safety Report 9887450 (Version 1)
Quarter: 2014Q1

REPORT INFORMATION
  Report Type: Spontaneous
  Country: US (occurrence: None)
  Receive Date: 20140207
  Receipt Date: 20140207
  Transmission Date: 20141002
  Serious: Yes (Hospitalization)
  Sender: FDA-Public Use
  Company Number: None

PATIENT
  Age: 86 Year
  Sex: Male
  Weight: 71.8 kg

DRUGS (2)
  1. DABIGATRAN [Suspect]
     Route: 048
     Dates: end: 20130210
  2. ASPIRIN [Suspect]
     Route: 048
     Dates: end: 20130210

REACTIONS (1)
  - Gastrointestinal haemorrhage [None]
